FAERS Safety Report 4297682-4 (Version None)
Quarter: 2004Q1

REPORT INFORMATION
  Report Type: 
  Country: None (occurrence: None)
  Receive Date: 20040126
  Receipt Date: 20031105
  Transmission Date: 20041129
  Serious: No
  Sender: FDA-Public Use
  Company Number: USA031151807

PATIENT
  Age: 20 Year
  Sex: Female
  Weight: 45 kg

DRUGS (2)
  1. STRATTERA [Suspect]
  2. DARVOCET [Suspect]
     Dates: start: 20031026

REACTIONS (2)
  - DISTURBANCE IN ATTENTION [None]
  - THINKING ABNORMAL [None]
